FAERS Safety Report 12810135 (Version 2)
Quarter: 2016Q4

REPORT INFORMATION
  Report Type: Spontaneous
  Country: US (occurrence: US)
  Receive Date: 20161005
  Receipt Date: 20161006
  Transmission Date: 20170207
  Serious: No
  Sender: FDA-Public Use
  Company Number: US-PFIZER INC-2016460987

PATIENT
  Age: 50 Year
  Sex: Male
  Weight: 77.11 kg

DRUGS (1)
  1. NEURONTIN [Suspect]
     Active Substance: GABAPENTIN
     Indication: ANXIETY
     Dosage: 100 MG, 3X/DAY (100MG, CAPSULES, ORALLY, 3 TIMES A DAY)
     Route: 048
     Dates: start: 201609

REACTIONS (3)
  - Feeling drunk [Unknown]
  - Euphoric mood [Unknown]
  - Product use issue [Unknown]
